FAERS Safety Report 5570231-6 (Version None)
Quarter: 2007Q4

REPORT INFORMATION
  Report Type: 
  Country: None (occurrence: None)
  Receive Date: 20071220
  Receipt Date: 20071211
  Transmission Date: 20080405
  Serious: Yes (Other)
  Sender: FDA-Public Use
  Company Number: CA-PFIZER INC-2007104510

PATIENT
  Age: 81 Year
  Sex: Male

DRUGS (1)
  1. ZITHROMAX [Suspect]
     Indication: PROPHYLAXIS
     Route: 048

REACTIONS (2)
  - SWOLLEN TONGUE [None]
  - TONGUE BLACK HAIRY [None]
